FAERS Safety Report 8883140 (Version 29)
Quarter: 2015Q2

REPORT INFORMATION
  Report Type: Spontaneous
  Country: CA (occurrence: CA)
  Receive Date: 20121102
  Receipt Date: 20150610
  Transmission Date: 20150821
  Serious: Yes (Hospitalization, Other)
  Sender: FDA-Public Use
  Company Number: CA-ROCHE-1151117

PATIENT
  Age: 65 Year
  Sex: Male
  Weight: 103 kg

DRUGS (22)
  1. XOLAIR [Suspect]
     Active Substance: OMALIZUMAB
     Route: 058
     Dates: start: 20121214
  2. XOLAIR [Suspect]
     Active Substance: OMALIZUMAB
     Route: 058
     Dates: start: 20140304
  3. NASONEX [Concomitant]
     Active Substance: MOMETASONE FUROATE
  4. PREDNISONE. [Concomitant]
     Active Substance: PREDNISONE
     Dosage: TAPERING DOSE OF 10 MG EVERY 5 DAYS
     Route: 048
  5. XOLAIR [Suspect]
     Active Substance: OMALIZUMAB
     Route: 058
     Dates: start: 20131105
  6. XOLAIR [Suspect]
     Active Substance: OMALIZUMAB
     Route: 058
     Dates: start: 20141216
  7. SINGULAIR [Concomitant]
     Active Substance: MONTELUKAST SODIUM
  8. PREDNISONE. [Concomitant]
     Active Substance: PREDNISONE
     Route: 065
     Dates: start: 20130410
  9. XOLAIR [Suspect]
     Active Substance: OMALIZUMAB
     Indication: ASTHMA
     Dosage: FORM STRENTH: 150 MG / 5 ML.
     Route: 058
     Dates: start: 20120827
  10. XOLAIR [Suspect]
     Active Substance: OMALIZUMAB
     Route: 058
     Dates: start: 20150303
  11. SPIRIVA [Concomitant]
     Active Substance: TIOTROPIUM BROMIDE MONOHYDRATE
     Route: 065
     Dates: start: 20121024
  12. PREDNISONE. [Concomitant]
     Active Substance: PREDNISONE
     Route: 048
  13. XOLAIR [Suspect]
     Active Substance: OMALIZUMAB
     Route: 058
     Dates: start: 20130318
  14. XOLAIR [Suspect]
     Active Substance: OMALIZUMAB
     Route: 058
     Dates: start: 20140819
  15. PLAVIX [Concomitant]
     Active Substance: CLOPIDOGREL BISULFATE
  16. XOLAIR [Suspect]
     Active Substance: OMALIZUMAB
     Route: 058
     Dates: start: 20140401
  17. XOLAIR [Suspect]
     Active Substance: OMALIZUMAB
     Route: 058
     Dates: start: 20150112
  18. XOLAIR [Suspect]
     Active Substance: OMALIZUMAB
     Route: 065
     Dates: start: 20130903
  19. ADVAIR HFA [Concomitant]
     Active Substance: FLUTICASONE PROPIONATE\SALMETEROL XINAFOATE
  20. FLOVENT [Concomitant]
     Active Substance: FLUTICASONE PROPIONATE
  21. DILTIAZEM [Concomitant]
     Active Substance: DILTIAZEM
  22. PREDNISONE. [Concomitant]
     Active Substance: PREDNISONE
     Route: 065

REACTIONS (31)
  - Dyspnoea [Recovered/Resolved with Sequelae]
  - Haematoma [Unknown]
  - Back pain [Unknown]
  - Cough [Unknown]
  - Upper respiratory tract infection [Unknown]
  - Weight decreased [Unknown]
  - Chest discomfort [Unknown]
  - Respiratory disorder [Unknown]
  - Dyspepsia [Unknown]
  - Nerve compression [Unknown]
  - Blood pressure increased [Not Recovered/Not Resolved]
  - Headache [Unknown]
  - Oedema peripheral [Unknown]
  - Back injury [Unknown]
  - Lobar pneumonia [Unknown]
  - Muscle spasms [Unknown]
  - Heart rate increased [Unknown]
  - Wheezing [Unknown]
  - Post procedural complication [Unknown]
  - Breath sounds abnormal [Unknown]
  - Cataract [Unknown]
  - Weight increased [Unknown]
  - Haemorrhage [Unknown]
  - General physical health deterioration [Unknown]
  - Injury [Unknown]
  - Fracture [Unknown]
  - Hiatus hernia [Unknown]
  - Productive cough [Unknown]
  - Asthma [Recovered/Resolved with Sequelae]
  - Sputum abnormal [Unknown]
  - Drug ineffective [Unknown]

NARRATIVE: CASE EVENT DATE: 20121104
